FAERS Safety Report 21135410 (Version 1)
Quarter: 2022Q3

REPORT INFORMATION
  Report Type: Spontaneous
  Country: US (occurrence: US)
  Receive Date: 20220727
  Receipt Date: 20220727
  Transmission Date: 20221026
  Serious: Yes (Hospitalization)
  Sender: FDA-Public Use
  Company Number: US-JNJFOC-20220746849

PATIENT
  Age: 64 Year
  Sex: Male
  Weight: 107.33 kg

DRUGS (4)
  1. XARELTO [Suspect]
     Active Substance: RIVAROXABAN
     Indication: Prophylaxis
     Route: 048
     Dates: start: 20220310
  2. DEXAMETHASONE [Suspect]
     Active Substance: DEXAMETHASONE
     Indication: Respiratory tract infection
     Dosage: DOSE 6MG PER 1.5ML
     Route: 042
     Dates: start: 20220303, end: 20220311
  3. REMDESIVIR [Suspect]
     Active Substance: REMDESIVIR
     Indication: COVID-19
     Route: 042
     Dates: start: 20220305, end: 20220309
  4. PRASUGREL [Suspect]
     Active Substance: PRASUGREL
     Indication: Coronary artery disease
     Route: 048
     Dates: start: 2019

REACTIONS (2)
  - Internal haemorrhage [Recovered/Resolved]
  - Off label use [Unknown]

NARRATIVE: CASE EVENT DATE: 20220402
